FAERS Safety Report 8267494-5 (Version None)
Quarter: 2012Q2

REPORT INFORMATION
  Report Type: 
  Country: None (occurrence: None)
  Receive Date: 20120409
  Receipt Date: 20120405
  Transmission Date: 20120825
  Serious: Yes (Death, Other)
  Sender: FDA-Public Use
  Company Number: PHFR2011GB007405

PATIENT
  Sex: Male

DRUGS (8)
  1. CITALOPRAM HYDROBROMIDE [Concomitant]
     Indication: DEPRESSION
  2. AMISULPRIDE [Concomitant]
     Dosage: 200 MG DAILY
     Route: 048
  3. ZOPICLONE [Concomitant]
     Indication: INSOMNIA
     Dosage: 7.5 MG, DAILY
     Route: 048
     Dates: start: 20070101
  4. CITALOPRAM HYDROBROMIDE [Concomitant]
     Indication: OBSESSIVE-COMPULSIVE DISORDER
     Dosage: 30 MG, DAILY
     Route: 048
     Dates: start: 20080301
  5. PROPRANOLOL [Concomitant]
     Indication: ANXIETY
     Dosage: 160 MG, DAILY
     Route: 048
  6. CLOZARIL [Suspect]
     Indication: SCHIZOPHRENIA, PARANOID TYPE
     Dosage: 375 MG, (100 MG+275 MG) DAILY
     Route: 048
     Dates: start: 20030114
  7. CLOZARIL [Suspect]
     Dosage: 350 MG, DAILY
  8. PROPRANOLOL [Concomitant]
     Dates: start: 20110901

REACTIONS (2)
  - ANTIPSYCHOTIC DRUG LEVEL ABOVE THERAPEUTIC [None]
  - DEATH [None]
